FAERS Safety Report 18089489 (Version 2)
Quarter: 2020Q3

REPORT INFORMATION
  Report Type: Spontaneous
  Country: US (occurrence: US)
  Receive Date: 20200728
  Receipt Date: 20200728
  Transmission Date: 20201103
  Serious: No
  Sender: FDA-Public Use
  Company Number: US-OSMOTICA_PHARMACEUTICAL_US_LLC-POI0573202000225

PATIENT
  Sex: Female

DRUGS (1)
  1. DIVIGEL [Suspect]
     Active Substance: ESTRADIOL
     Indication: HOT FLUSH
     Route: 062
     Dates: start: 20200301

REACTIONS (2)
  - Incorrect route of product administration [Not Recovered/Not Resolved]
  - Drug ineffective [Not Recovered/Not Resolved]

NARRATIVE: CASE EVENT DATE: 20200301
